FAERS Safety Report 7577442-9 (Version None)
Quarter: 2011Q2

REPORT INFORMATION
  Report Type: 
  Country: None (occurrence: None)
  Receive Date: 20110628
  Receipt Date: 20110627
  Transmission Date: 20111010
  Serious: Yes (Hospitalization)
  Sender: FDA-Public Use
  Company Number: IT-SANOFI-AVENTIS-2011SA040475

PATIENT
  Age: 69 Year
  Sex: Female

DRUGS (7)
  1. LORAZEPAM [Concomitant]
  2. ALLOPURINOL [Concomitant]
  3. POTASSION [Concomitant]
  4. MULTI-VITAMINS [Concomitant]
  5. FUROSEMIDE [Suspect]
     Route: 048
     Dates: start: 20110101, end: 20110617
  6. ESOMEPRAZOLE MAGNESIUM [Concomitant]
  7. LACTULOSE [Concomitant]

REACTIONS (4)
  - RENAL FAILURE ACUTE [None]
  - HYPOKALAEMIA [None]
  - HYPOMAGNESAEMIA [None]
  - HYPONATRAEMIA [None]
